FAERS Safety Report 13568698 (Version 1)
Quarter: 2017Q2

REPORT INFORMATION
  Report Type: Spontaneous
  Country: US (occurrence: US)
  Receive Date: 20170522
  Receipt Date: 20170522
  Transmission Date: 20170830
  Serious: No
  Sender: FDA-Public Use
  Company Number: US-CELGENEUS-USA-20170500659

PATIENT
  Sex: Female

DRUGS (3)
  1. THALOMID [Suspect]
     Active Substance: THALIDOMIDE
     Indication: PARAESTHESIA
     Dosage: 150 MILLIGRAM
     Route: 048
     Dates: start: 201704
  2. THALOMID [Suspect]
     Active Substance: THALIDOMIDE
     Indication: OFF LABEL USE
  3. THALOMID [Suspect]
     Active Substance: THALIDOMIDE
     Indication: PARAESTHESIA
     Dosage: 100 MILLIGRAM
     Route: 048
     Dates: start: 20170112, end: 2017

REACTIONS (3)
  - Rash [Unknown]
  - Seasonal allergy [Unknown]
  - Ear infection [Unknown]

NARRATIVE: CASE EVENT DATE: 2017
